FAERS Safety Report 4822802-X (Version None)
Quarter: 2005Q4

REPORT INFORMATION
  Report Type: 
  Country: None (occurrence: None)
  Receive Date: 20051108
  Receipt Date: 20050801
  Transmission Date: 20060501
  Serious: Yes (Life-Threatening, Hospitalization, Disabling)
  Sender: FDA-Public Use
  Company Number: US-ROCHE-412737

PATIENT
  Age: 80 Year
  Sex: Female
  Weight: 81 kg

DRUGS (9)
  1. DEMADEX [Suspect]
     Indication: DRUG USE FOR UNKNOWN INDICATION
     Dosage: FREQUENCY: Q8 2 HR)
     Route: 042
     Dates: start: 20050228, end: 20050304
  2. DIGOXIN [Suspect]
     Indication: DRUG USE FOR UNKNOWN INDICATION
     Route: 065
  3. ENOXAPARIN SODIUM [Suspect]
     Indication: ACUTE CORONARY SYNDROME
     Dosage: TOTAL DOSE ADMINISTERED WAS 680MG.
     Route: 058
     Dates: start: 20050228, end: 20050307
  4. ASPIRIN [Suspect]
     Indication: CORONARY ARTERY DISEASE
     Route: 048
  5. PLAVIX [Suspect]
     Indication: CORONARY ARTERY DISEASE
     Route: 048
     Dates: start: 20050301, end: 20050304
  6. LEVOFLOXACIN [Suspect]
     Indication: DRUG USE FOR UNKNOWN INDICATION
     Route: 065
     Dates: start: 20050228, end: 20050303
  7. DIOVAN [Concomitant]
  8. FUROSEMIDE [Concomitant]
  9. NORVASC [Concomitant]

REACTIONS (6)
  - ANAEMIA [None]
  - CARDIAC FAILURE CONGESTIVE [None]
  - DIABETIC NEPHROPATHY [None]
  - PNEUMONIA [None]
  - RENAL FAILURE ACUTE [None]
  - THERAPEUTIC AGENT TOXICITY [None]
